FAERS Safety Report 9401902 (Version 4)
Quarter: 2014Q2

REPORT INFORMATION
  Report Type: Spontaneous
  Country: US (occurrence: US)
  Receive Date: 20130716
  Receipt Date: 20140403
  Transmission Date: 20141212
  Serious: Yes (Hospitalization, Other)
  Sender: FDA-Public Use
  Company Number: US-009507513-1307USA004635

PATIENT
  Sex: Female

DRUGS (6)
  1. FOSAMAX [Suspect]
     Indication: OSTEOPOROSIS
     Dosage: 10 MG, UNK
     Route: 048
     Dates: start: 199510, end: 200802
  2. FOSAMAX [Suspect]
     Dosage: 70 MG, QW
     Route: 048
     Dates: end: 200802
  3. ALENDRONATE SODIUM [Suspect]
     Indication: OSTEOPOROSIS
     Dosage: 70 MG, UNK
     Route: 048
     Dates: start: 200802, end: 200908
  4. VITAMINS (UNSPECIFIED) [Concomitant]
     Dosage: UNK, QD
     Dates: start: 200001
  5. CALCIUM (UNSPECIFIED) [Concomitant]
     Dosage: 600 MG, QD
     Dates: start: 200001
  6. VITAMIN D (UNSPECIFIED) [Concomitant]
     Dosage: 1000 IU, QD
     Dates: start: 200001

REACTIONS (29)
  - Femur fracture [Recovered/Resolved]
  - Pubis fracture [Recovered/Resolved]
  - Intramedullary rod insertion [Unknown]
  - Femur fracture [Recovering/Resolving]
  - Intramedullary rod insertion [Unknown]
  - Rotator cuff repair [Unknown]
  - Foot fracture [Unknown]
  - Hypercholesterolaemia [Unknown]
  - Vitamin D deficiency [Unknown]
  - Hypothyroidism [Unknown]
  - Calcium deficiency [Unknown]
  - Anaemia postoperative [Unknown]
  - Fall [Unknown]
  - Fall [Unknown]
  - Skin abrasion [Unknown]
  - Bursitis [Unknown]
  - Tendonitis [Unknown]
  - Weight decreased [Unknown]
  - Cachexia [Unknown]
  - Decreased appetite [Unknown]
  - Foot operation [Unknown]
  - Cataract operation [Unknown]
  - Piriformis syndrome [Unknown]
  - Medical device pain [Recovered/Resolved]
  - Medical device removal [Unknown]
  - Joint swelling [Unknown]
  - Arthralgia [Unknown]
  - Gastrooesophageal reflux disease [Unknown]
  - Muscle spasms [Unknown]
